FAERS Safety Report 7851506-4 (Version None)
Quarter: 2011Q4

REPORT INFORMATION
  Report Type: 
  Country: None (occurrence: None)
  Receive Date: 20111026
  Receipt Date: 20111021
  Transmission Date: 20120403
  Serious: Yes (Hospitalization)
  Sender: FDA-Public Use
  Company Number: BR-ROCHE-761329

PATIENT
  Sex: Female
  Weight: 52 kg

DRUGS (17)
  1. OMEPRAZOLE [Concomitant]
  2. GLYBURIDE [Concomitant]
  3. FLUOXETINE HCL [Concomitant]
  4. CAPTOPRIL [Concomitant]
  5. PROTOS [Concomitant]
  6. PHENERGAN [Concomitant]
  7. MABTHERA [Suspect]
     Indication: OVERLAP SYNDROME
     Dosage: ROUTE: ENDOVENOUS
     Route: 042
     Dates: start: 20100316, end: 20100330
  8. SUPPLEMENT NOS [Concomitant]
  9. NORIPURUM [Concomitant]
  10. METFORMIN HCL [Concomitant]
  11. TRAMADOL HCL [Concomitant]
  12. PREDNISONE [Concomitant]
  13. CLONAZEPAM [Concomitant]
  14. MABTHERA [Suspect]
     Route: 042
     Dates: start: 20100301, end: 20100315
  15. LYRICA [Concomitant]
  16. RESPIDON [Concomitant]
  17. ASPIRIN [Concomitant]

REACTIONS (6)
  - FISTULA [None]
  - DYSSTASIA [None]
  - DEMENTIA ALZHEIMER'S TYPE [None]
  - SYSTEMIC LUPUS ERYTHEMATOSUS [None]
  - PNEUMONIA [None]
  - DEVICE RELATED INFECTION [None]
